FAERS Safety Report 6715828-2 (Version None)
Quarter: 2010Q2

REPORT INFORMATION
  Report Type: 
  Country: None (occurrence: None)
  Receive Date: 20100507
  Receipt Date: 20100428
  Transmission Date: 20101027
  Serious: Yes (Hospitalization)
  Sender: FDA-Public Use
  Company Number: US-TEVA-233049USA

PATIENT
  Age: 64 Year
  Sex: Female
  Weight: 49.032 kg

DRUGS (7)
  1. FLUOROURACIL [Suspect]
     Indication: COLORECTAL CANCER
     Route: 040
     Dates: start: 20090105
  2. FLUOROURACIL [Suspect]
     Route: 041
     Dates: start: 20090105
  3. FOLINIC ACID [Suspect]
     Indication: COLORECTAL CANCER
     Route: 042
     Dates: start: 20090105
  4. OXALIPLATIN [Suspect]
     Indication: COLORECTAL CANCER
     Route: 042
     Dates: start: 20090105
  5. SUNITINIB MALATE [Suspect]
     Indication: COLORECTAL CANCER
     Route: 048
     Dates: start: 20090105
  6. OXYCODONE HCL [Concomitant]
     Indication: PAIN
     Dates: start: 20091008
  7. FENTANYL [Concomitant]
     Indication: PAIN
     Route: 062
     Dates: start: 20090616

REACTIONS (1)
  - PNEUMONIA [None]
